FAERS Safety Report 11617896 (Version 3)
Quarter: 2015Q4

REPORT INFORMATION
  Report Type: Spontaneous
  Country: US (occurrence: US)
  Receive Date: 20151009
  Receipt Date: 20151106
  Transmission Date: 20160304
  Serious: No
  Sender: FDA-Public Use
  Company Number: US-ELI_LILLY_AND_COMPANY-US201510001784

PATIENT
  Age: 72 Year
  Sex: Female

DRUGS (14)
  1. VITAMIN D [Concomitant]
     Active Substance: CHOLECALCIFEROL
     Dosage: UNK, UNKNOWN
     Route: 065
  2. VYTORIN [Concomitant]
     Active Substance: EZETIMIBE\SIMVASTATIN
  3. GLIMEPIRIDE. [Concomitant]
     Active Substance: GLIMEPIRIDE
  4. DILTIAZEM [Concomitant]
     Active Substance: DILTIAZEM
  5. FORTEO [Suspect]
     Active Substance: TERIPARATIDE
     Indication: OSTEOPOROSIS
     Dosage: UNK UNK, QD
     Route: 065
     Dates: start: 20150225
  6. VITAMIIN C [Concomitant]
     Active Substance: ASCORBIC ACID
     Dosage: UNK, UNKNOWN
     Route: 065
  7. METOPROLOL [Concomitant]
     Active Substance: METOPROLOL
  8. NAMENDA [Concomitant]
     Active Substance: MEMANTINE HYDROCHLORIDE
  9. PLAVIX [Concomitant]
     Active Substance: CLOPIDOGREL BISULFATE
  10. FORTEO [Suspect]
     Active Substance: TERIPARATIDE
     Dosage: UNK UNK, QD
     Route: 065
  11. CRESTOR [Concomitant]
     Active Substance: ROSUVASTATIN CALCIUM
  12. ASPIRIN                            /00002701/ [Concomitant]
     Active Substance: ASPIRIN
  13. METFORMIN [Concomitant]
     Active Substance: METFORMIN HYDROCHLORIDE
  14. MAGNESIUM [Concomitant]
     Active Substance: MAGNESIUM
     Dosage: UNK, UNKNOWN
     Route: 065

REACTIONS (5)
  - Drug dose omission [Recovered/Resolved]
  - Mass [Unknown]
  - Incorrect dose administered [Recovered/Resolved]
  - Incorrect dose administered [Unknown]
  - Drug dose omission [Recovered/Resolved]

NARRATIVE: CASE EVENT DATE: 20151003
